FAERS Safety Report 24525783 (Version 1)
Quarter: 2024Q4

REPORT INFORMATION
  Report Type: Report from Study
  Country: CO (occurrence: CO)
  Receive Date: 20241020
  Receipt Date: 20241020
  Transmission Date: 20250115
  Serious: Yes (Hospitalization, Other)
  Sender: UCB
  Company Number: CO-UCBSA-2024052750

PATIENT
  Age: 37 Year
  Sex: Female

DRUGS (2)
  1. CERTOLIZUMAB PEGOL [Suspect]
     Active Substance: CERTOLIZUMAB PEGOL
     Indication: Ankylosing spondylitis
     Dosage: 400 MILLIGRAM, EV 15 DAYS
     Route: 058
     Dates: start: 20230302, end: 20230314
  2. CERTOLIZUMAB PEGOL [Suspect]
     Active Substance: CERTOLIZUMAB PEGOL
     Dosage: 400 MILLIGRAM, EV 30 DAYS
     Route: 058
     Dates: start: 20230331, end: 20240807

REACTIONS (2)
  - Sleeve gastrectomy [Recovered/Resolved]
  - Gastrointestinal disorder [Unknown]

NARRATIVE: CASE EVENT DATE: 20240827
